FAERS Safety Report 12633248 (Version 2)
Quarter: 2016Q3

REPORT INFORMATION
  Report Type: Spontaneous
  Country: US (occurrence: US)
  Receive Date: 20160808
  Receipt Date: 20160808
  Transmission Date: 20161109
  Serious: No
  Sender: FDA-Public Use
  Company Number: US-BEH-2016059998

PATIENT
  Age: 54 Year
  Sex: Female
  Weight: 68 kg

DRUGS (34)
  1. HIZENTRA [Suspect]
     Active Substance: HUMAN IMMUNOGLOBULIN G
     Indication: ACUTE SINUSITIS
     Route: 058
  2. IBUPROFEN. [Concomitant]
     Active Substance: IBUPROFEN
  3. EPIPEN [Concomitant]
     Active Substance: EPINEPHRINE
  4. TRAMADOL. [Concomitant]
     Active Substance: TRAMADOL
  5. POTASSIUM CHLORIDE. [Concomitant]
     Active Substance: POTASSIUM CHLORIDE
  6. DIPHENHYDRAMINE. [Concomitant]
     Active Substance: DIPHENHYDRAMINE
  7. L-M-X [Concomitant]
  8. DEMEROL [Concomitant]
     Active Substance: MEPERIDINE HYDROCHLORIDE
  9. CIPRO [Concomitant]
     Active Substance: CIPROFLOXACIN HYDROCHLORIDE
  10. TRAZODONE [Concomitant]
     Active Substance: TRAZODONE HYDROCHLORIDE
  11. HIZENTRA [Suspect]
     Active Substance: HUMAN IMMUNOGLOBULIN G
     Indication: ACUTE SINUSITIS
     Route: 058
  12. OXYCODONE-ACETAMINOPHEN [Concomitant]
     Active Substance: ACETAMINOPHEN\OXYCODONE HYDROCHLORIDE
  13. MUCINEX D ER [Concomitant]
  14. VALIUM [Concomitant]
     Active Substance: DIAZEPAM
  15. CLONAZEPAM. [Concomitant]
     Active Substance: CLONAZEPAM
  16. BUSPIRONE [Concomitant]
     Active Substance: BUSPIRONE HYDROCHLORIDE
  17. XOPENEX [Concomitant]
     Active Substance: LEVALBUTEROL HYDROCHLORIDE
  18. ACETAMINOPHEN. [Concomitant]
     Active Substance: ACETAMINOPHEN
  19. INDOMETHACIN. [Concomitant]
     Active Substance: INDOMETHACIN
  20. HIZENTRA [Suspect]
     Active Substance: HUMAN IMMUNOGLOBULIN G
     Indication: DYSPNOEA
     Route: 058
  21. KEFLEX [Concomitant]
     Active Substance: CEPHALEXIN
  22. LEXAPRO [Concomitant]
     Active Substance: ESCITALOPRAM OXALATE
  23. CEFDINIR. [Concomitant]
     Active Substance: CEFDINIR
  24. METFORMIN [Concomitant]
     Active Substance: METFORMIN HYDROCHLORIDE
  25. CYCLOBENZAPRINE [Concomitant]
     Active Substance: CYCLOBENZAPRINE
  26. CODEINE-GUAIFENESIN [Concomitant]
     Active Substance: CODEINE PHOSPHATE\GUAIFENESIN
  27. ACYCLOVIR. [Concomitant]
     Active Substance: ACYCLOVIR
  28. EFFEXOR XR [Concomitant]
     Active Substance: VENLAFAXINE HYDROCHLORIDE
  29. PHENERGAN W/DM SYRUP [Concomitant]
  30. ZEGERID OTC [Concomitant]
     Active Substance: OMEPRAZOLE\SODIUM BICARBONATE
  31. AMOXICILLIN. [Concomitant]
     Active Substance: AMOXICILLIN
  32. PREDNISONE. [Concomitant]
     Active Substance: PREDNISONE
  33. SEROQUEL [Concomitant]
     Active Substance: QUETIAPINE FUMARATE
  34. ESTER-C [Concomitant]
     Active Substance: CALCIUM\VITAMINS

REACTIONS (1)
  - Bronchitis [Unknown]

NARRATIVE: CASE EVENT DATE: 20151204
